FAERS Safety Report 17494960 (Version 2)
Quarter: 2021Q1

REPORT INFORMATION
  Report Type: Spontaneous
  Country: US (occurrence: US)
  Receive Date: 20200303
  Receipt Date: 20210303
  Transmission Date: 20210419
  Serious: No
  Sender: FDA-Public Use
  Company Number: US-AMNEAL PHARMACEUTICALS-2019-AMRX-03482

PATIENT
  Age: 79 Year
  Sex: Female

DRUGS (6)
  1. RYTARY [Suspect]
     Active Substance: CARBIDOPA\LEVODOPA
     Dosage: 61.25?245MG, 1 CAPSULES, 5 /DAY
     Route: 048
     Dates: start: 20191114
  2. RYTARY [Suspect]
     Active Substance: CARBIDOPA\LEVODOPA
     Dosage: 61.25/245 MG, 1 CAPSULES, 6 /DAY
     Route: 048
     Dates: start: 2020, end: 2020
  3. RYTARY [Suspect]
     Active Substance: CARBIDOPA\LEVODOPA
     Dosage: 61.25/245 MG, 2 CAPSULES, 3 /DAY (AT 7AM, 11AM AND 7PM)
     Route: 048
     Dates: start: 2020, end: 2020
  4. RYTARY [Suspect]
     Active Substance: CARBIDOPA\LEVODOPA
     Indication: PARKINSON^S DISEASE
     Dosage: 48.75?195MG, 1 CAPSULES, 5 /DAY
     Route: 048
  5. RYTARY [Suspect]
     Active Substance: CARBIDOPA\LEVODOPA
     Dosage: 61.25/245 MG, 2 CAPSULES, 3 /DAY
     Route: 048
     Dates: start: 20200508, end: 2020
  6. RYTARY [Suspect]
     Active Substance: CARBIDOPA\LEVODOPA
     Dosage: 61.25/245 MG, 1 CAPSULES, 3 /DAY
     Route: 048
     Dates: start: 20201021

REACTIONS (2)
  - Therapeutic response decreased [Unknown]
  - Weight decreased [Not Recovered/Not Resolved]

NARRATIVE: CASE EVENT DATE: 20191114
